FAERS Safety Report 8192694-2 (Version None)
Quarter: 2012Q1

REPORT INFORMATION
  Report Type: 
  Country: None (occurrence: None)
  Receive Date: 20120221
  Receipt Date: 20111111
  Transmission Date: 20120608
  Serious: No
  Sender: FDA-Public Use
  Company Number: 1000025437

PATIENT
  Age: 73 Year
  Sex: Female

DRUGS (4)
  1. KLONOPIN [Concomitant]
  2. LAMICTAL [Concomitant]
  3. VIIBRYD [Suspect]
     Indication: DEPRESSION
     Dosage: 10 MG (10 MG, 1 IN 1 D), ORAL
     Route: 048
     Dates: start: 20111107
  4. RITALIN (METHYLPHENIDATE HYDROCHLORIDE) (METHYLPHENIDATE HYDROCHLORIDE [Concomitant]

REACTIONS (4)
  - DECREASED APPETITE [None]
  - DRY MOUTH [None]
  - LETHARGY [None]
  - NAUSEA [None]
